FAERS Safety Report 9522961 (Version 1)
Quarter: 2013Q3

REPORT INFORMATION
  Report Type: Spontaneous
  Country: DE (occurrence: DE)
  Receive Date: 20130913
  Receipt Date: 20130913
  Transmission Date: 20140515
  Serious: Yes (Other)
  Sender: FDA-Public Use
  Company Number: DE-BAYER-2013-109207

PATIENT
  Age: 32 Year
  Sex: Male

DRUGS (2)
  1. CIPROBAY [Suspect]
     Dosage: 250 MG, UNK
  2. ACETYLSALICYLIC ACID [Concomitant]

REACTIONS (6)
  - Blood creatinine increased [None]
  - Creatinine renal clearance decreased [None]
  - Red blood cell sedimentation rate increased [None]
  - Hypertension [None]
  - Tubulointerstitial nephritis [None]
  - Isosthenuria [None]
